FAERS Safety Report 18512684 (Version 2)
Quarter: 2020Q4

REPORT INFORMATION
  Report Type: Report from Study
  Country: US (occurrence: US)
  Receive Date: 20201117
  Receipt Date: 20201118
  Transmission Date: 20210114
  Serious: Yes (Death)
  Sender: FDA-Public Use
  Company Number: US-PFIZER INC-2020450355

PATIENT

DRUGS (1)
  1. GEMCITABINE HYDROCHLORIDE. [Suspect]
     Active Substance: GEMCITABINE HYDROCHLORIDE
     Indication: PANCREATIC CARCINOMA
     Dosage: 600 MG/M2 ((OVER 30 TO 60 MINUTES) BEGINNING ON THE 1ST DAY THEN WEEKLY
     Route: 042

REACTIONS (1)
  - Acute respiratory distress syndrome [Fatal]
